FAERS Safety Report 6266613-X (Version None)
Quarter: 2009Q3

REPORT INFORMATION
  Report Type: 
  Country: None (occurrence: None)
  Receive Date: 20090709
  Receipt Date: 20090709
  Transmission Date: 20100115
  Serious: Yes (Hospitalization)
  Sender: FDA-Public Use
  Company Number: 237108K09USA

PATIENT
  Age: 53 Year
  Sex: Female

DRUGS (7)
  1. REBIF [Suspect]
     Indication: MULTIPLE SCLEROSIS
     Dosage: 44 MCG, 3 IN 1 WEEKS, SUBCUTANEOUS
     Route: 058
     Dates: start: 20060705
  2. SOLU-MEDROL [Suspect]
     Indication: MULTIPLE SCLEROSIS RELAPSE
     Dosage: 1000 MG, INTRAVENOUS ( NOT OTHERWISE SPECIFIED)
     Route: 042
     Dates: start: 20090629, end: 20090702
  3. LEXAPRO [Concomitant]
  4. ATENOLOL [Concomitant]
  5. KLONOPIN [Concomitant]
  6. VISTARIL (HYDROXYZINE HYDROCHLORIDE) [Concomitant]
  7. IBUPROFEN [Concomitant]

REACTIONS (9)
  - BLOOD GLUCOSE INCREASED [None]
  - CRYING [None]
  - EMOTIONAL DISORDER [None]
  - ERYTHEMA [None]
  - FEELING ABNORMAL [None]
  - HYPERHIDROSIS [None]
  - MULTIPLE SCLEROSIS RELAPSE [None]
  - PSYCHOMOTOR HYPERACTIVITY [None]
  - SLEEP DISORDER [None]
